FAERS Safety Report 15396282 (Version 1)
Quarter: 2018Q3

REPORT INFORMATION
  Report Type: Spontaneous
  Country: US (occurrence: US)
  Receive Date: 20180912
  Receipt Date: 20180912
  Transmission Date: 20181010
  Serious: No
  Sender: FDA-Public Use
  Company Number: None

PATIENT
  Sex: Female

DRUGS (1)
  1. SWEATBLOCK ANTIPERSPIRANT LOTION FOR HANDS + FEET [Suspect]
     Active Substance: ALUMINUM SESQUICHLOROHYDRATE

REACTIONS (2)
  - Product advertising issue [None]
  - Product use complaint [None]

NARRATIVE: CASE EVENT DATE: 20180912
